FAERS Safety Report 25620760 (Version 3)
Quarter: 2025Q3

REPORT INFORMATION
  Report Type: Report from Study
  Country: US (occurrence: US)
  Receive Date: 20250730
  Receipt Date: 20250917
  Transmission Date: 20251021
  Serious: No
  Sender: ABBVIE
  Company Number: US-ABBVIE-6392035

PATIENT
  Sex: Female

DRUGS (1)
  1. RINVOQ [Suspect]
     Active Substance: UPADACITINIB
     Indication: Ankylosing spondylitis
     Route: 048

REACTIONS (8)
  - Peripheral swelling [Recovering/Resolving]
  - Fatigue [Unknown]
  - Therapeutic product effect incomplete [Not Recovered/Not Resolved]
  - Hunger [Unknown]
  - Somnolence [Unknown]
  - Crohn^s disease [Unknown]
  - Joint swelling [Recovering/Resolving]
  - Loss of personal independence in daily activities [Unknown]
